FAERS Safety Report 5917638-2 (Version None)
Quarter: 2008Q4

REPORT INFORMATION
  Report Type: 
  Country: None (occurrence: None)
  Receive Date: 20081014
  Receipt Date: 20081014
  Transmission Date: 20090506
  Serious: Yes (Hospitalization)
  Sender: FDA-Public Use
  Company Number: A0751772A

PATIENT

DRUGS (1)
  1. ALLI [Suspect]

REACTIONS (10)
  - CHEST PAIN [None]
  - COUGH [None]
  - DYSPNOEA [None]
  - FATIGUE [None]
  - FLANK PAIN [None]
  - HEADACHE [None]
  - PULMONARY THROMBOSIS [None]
  - THROMBOSIS [None]
  - WEIGHT FLUCTUATION [None]
  - WEIGHT INCREASED [None]
